FAERS Safety Report 21623424 (Version 1)
Quarter: 2022Q4

REPORT INFORMATION
  Report Type: Spontaneous
  Country: DE (occurrence: None)
  Receive Date: 20221121
  Receipt Date: 20221121
  Transmission Date: 20230112
  Serious: Yes (Life-Threatening, Disabling)
  Sender: FDA-Public Use
  Company Number: None

PATIENT
  Sex: Male
  Weight: 100 kg

DRUGS (1)
  1. PROSCAR [Suspect]
     Active Substance: FINASTERIDE
     Dosage: OTHER QUANTITY : 1 TABLET(S);?
     Route: 048

REACTIONS (5)
  - COVID-19 [None]
  - Therapy interrupted [None]
  - Dry skin [None]
  - Depression [None]
  - Suicidal ideation [None]
